FAERS Safety Report 16121616 (Version 1)
Quarter: 2019Q1

REPORT INFORMATION
  Report Type: Report from Study
  Country: US (occurrence: US)
  Receive Date: 20190327
  Receipt Date: 20190327
  Transmission Date: 20190418
  Serious: Yes (Death)
  Sender: FDA-Public Use
  Company Number: US-ASTRAZENECA-2019SE20083

PATIENT
  Age: 12426 Day
  Sex: Male

DRUGS (2)
  1. LYNPARZA [Suspect]
     Active Substance: OLAPARIB
     Route: 048
  2. KEPPRA [Concomitant]
     Active Substance: LEVETIRACETAM

REACTIONS (6)
  - Diarrhoea [Unknown]
  - Off label use [Unknown]
  - Product use issue [Unknown]
  - Death [Fatal]
  - Headache [Unknown]
  - Back pain [Unknown]

NARRATIVE: CASE EVENT DATE: 20180316
